FAERS Safety Report 19087671 (Version 3)
Quarter: 2021Q4

REPORT INFORMATION
  Report Type: Report from Study
  Country: US (occurrence: US)
  Receive Date: 20210402
  Receipt Date: 20211004
  Transmission Date: 20220303
  Serious: Yes (Hospitalization)
  Sender: FDA-Public Use
  Company Number: US-UCBSA-2021013619

PATIENT
  Age: 46 Year
  Sex: Female

DRUGS (5)
  1. LACOSAMIDE [Interacting]
     Active Substance: LACOSAMIDE
     Indication: Seizure
     Dosage: 300 MILLIGRAM, 2X/DAY (BID)
  2. LACOSAMIDE [Interacting]
     Active Substance: LACOSAMIDE
     Dosage: 200 MILLIGRAM, 2X/DAY (BID)
  3. LACOSAMIDE [Interacting]
     Active Substance: LACOSAMIDE
     Dosage: USED VIMPAT 100MG AS SUBSTITUTION
  4. CIPRO [Interacting]
     Active Substance: CIPROFLOXACIN HYDROCHLORIDE
     Indication: Product used for unknown indication
     Dosage: UNK
  5. EPIDIOLEX [Suspect]
     Active Substance: CANNABIDIOL
     Indication: Product used for unknown indication
     Dosage: UNK
     Dates: start: 202104, end: 2021

REACTIONS (10)
  - Urinary tract infection [Not Recovered/Not Resolved]
  - Seizure [Not Recovered/Not Resolved]
  - Feeling abnormal [Not Recovered/Not Resolved]
  - Drug interaction [Not Recovered/Not Resolved]
  - Drug hypersensitivity [Not Recovered/Not Resolved]
  - Overdose [Unknown]
  - Off label use [Unknown]
  - Diarrhoea [Unknown]
  - Product availability issue [Unknown]
  - Therapy interrupted [Unknown]

NARRATIVE: CASE EVENT DATE: 20210101
